FAERS Safety Report 22087105 (Version 1)
Quarter: 2023Q1

REPORT INFORMATION
  Report Type: Spontaneous
  Country: US (occurrence: US)
  Receive Date: 20230313
  Receipt Date: 20230313
  Transmission Date: 20230417
  Serious: Yes (Other)
  Sender: FDA-Public Use
  Company Number: US-JNJFOC-20230309026

PATIENT
  Age: 74 Year
  Sex: Female
  Weight: 99.880 kg

DRUGS (5)
  1. OPSUMIT [Suspect]
     Active Substance: MACITENTAN
     Indication: Product used for unknown indication
     Route: 048
  2. TYVASO [Suspect]
     Active Substance: TREPROSTINIL
     Indication: Pulmonary hypertension
     Dosage: (9 BREATHS)
     Route: 065
  3. TYVASO [Suspect]
     Active Substance: TREPROSTINIL
     Route: 065
  4. TYVASO [Suspect]
     Active Substance: TREPROSTINIL
     Route: 065
  5. TYVASO [Suspect]
     Active Substance: TREPROSTINIL
     Route: 065
     Dates: start: 20221206

REACTIONS (10)
  - Ascites [Unknown]
  - Oxygen saturation decreased [Not Recovered/Not Resolved]
  - Pulmonary hypertension [Unknown]
  - Flushing [Unknown]
  - Headache [Unknown]
  - Productive cough [Unknown]
  - Feeling abnormal [Unknown]
  - Weight increased [Unknown]
  - Dizziness [Recovering/Resolving]
  - Weight decreased [Unknown]
